FAERS Safety Report 9901163 (Version 1)
Quarter: 2014Q1

REPORT INFORMATION
  Report Type: Spontaneous
  Country: US (occurrence: US)
  Receive Date: 20140217
  Receipt Date: 20140217
  Transmission Date: 20141002
  Serious: No
  Sender: FDA-Public Use
  Company Number: US-PFIZER INC-2014043441

PATIENT
  Age: 74 Year
  Sex: 0

DRUGS (2)
  1. EFFEXOR XR [Suspect]
     Indication: MAJOR DEPRESSION
     Dosage: 300 MG, UNK
  2. EFFEXOR [Suspect]
     Dosage: UNK

REACTIONS (3)
  - Pruritus [Unknown]
  - Erythema of eyelid [Unknown]
  - Drug administration error [Unknown]
